FAERS Safety Report 7216388-2 (Version None)
Quarter: 2011Q1

REPORT INFORMATION
  Report Type: 
  Country: None (occurrence: None)
  Receive Date: 20110107
  Receipt Date: 20110103
  Transmission Date: 20110831
  Serious: Yes (Death, Life-Threatening)
  Sender: FDA-Public Use
  Company Number: A0899541A

PATIENT
  Sex: Female

DRUGS (2)
  1. UNKNOWN MEDICATION [Concomitant]
  2. ARZERRA [Suspect]
     Indication: MULTIPLE MYELOMA
     Route: 065

REACTIONS (2)
  - DEATH [None]
  - EJECTION FRACTION DECREASED [None]
